FAERS Safety Report 10184888 (Version 1)
Quarter: 2014Q2

REPORT INFORMATION
  Report Type: Spontaneous
  Country: US (occurrence: None)
  Receive Date: 20140520
  Receipt Date: 20140520
  Transmission Date: 20141212
  Serious: No
  Sender: FDA-Public Use
  Company Number: None

PATIENT
  Sex: Female

DRUGS (15)
  1. TRAZODONE [Suspect]
     Indication: INSOMNIA
     Dosage: 50 MG?1 PILL EVERY 4 HRS AS NEEDED?EVERY 4 GRS AS NEEDED?NIYTG
     Route: 048
     Dates: start: 20140313
  2. ESCITALOPRAM [Concomitant]
  3. PROVASTATIN [Concomitant]
  4. AMLODIPINE [Concomitant]
  5. HYDROCODONE [Concomitant]
  6. ASPIRIN [Concomitant]
  7. PROBIATIC [Concomitant]
  8. CALCIUM 600 + D [Concomitant]
  9. OCUVITE [Concomitant]
  10. GASX [Concomitant]
  11. CEFN [Concomitant]
  12. MELATONIN [Concomitant]
  13. STOOL SOFTNER PHILLIPS [Concomitant]
  14. DEEP EAS PREMIUM SALINE NASAL [Concomitant]
  15. LONITI DIARRHEA [Concomitant]

REACTIONS (4)
  - Myalgia [None]
  - Screaming [None]
  - Drug ineffective [None]
  - Drug clearance decreased [None]
